FAERS Safety Report 6376560-0 (Version None)
Quarter: 2009Q3

REPORT INFORMATION
  Report Type: 
  Country: None (occurrence: None)
  Receive Date: 20090925
  Receipt Date: 20090915
  Transmission Date: 20100115
  Serious: Yes (Other)
  Sender: FDA-Public Use
  Company Number: AU-PFIZER INC-2009269384

PATIENT

DRUGS (1)
  1. GENOTROPIN [Suspect]
     Dosage: 7 MG, WEEKLY

REACTIONS (2)
  - HEADACHE [None]
  - VISUAL ACUITY REDUCED [None]
